FAERS Safety Report 18642286 (Version 5)
Quarter: 2021Q3

REPORT INFORMATION
  Report Type: Other
  Country: IT (occurrence: IT)
  Receive Date: 20201221
  Receipt Date: 20210917
  Transmission Date: 20211014
  Serious: No
  Sender: FDA-Public Use
  Company Number: IT-ROCHE-2732979

PATIENT
  Age: 29 Year
  Sex: Male
  Weight: 80 kg

DRUGS (14)
  1. OCRELIZUMAB. [Suspect]
     Active Substance: OCRELIZUMAB
     Indication: RELAPSING-REMITTING MULTIPLE SCLEROSIS
     Dosage: 300 MG/250 ML
     Route: 042
     Dates: start: 20200113, end: 20200113
  2. OCRELIZUMAB. [Suspect]
     Active Substance: OCRELIZUMAB
     Indication: RELAPSING-REMITTING MULTIPLE SCLEROSIS
     Dosage: 300 MG/250 ML
     Route: 042
     Dates: start: 20191227, end: 20191227
  3. OCRELIZUMAB. [Suspect]
     Active Substance: OCRELIZUMAB
     Dosage: 600 MG/500 ML
     Route: 042
     Dates: start: 20200819, end: 20200819
  4. GABAPENTIN. [Concomitant]
     Active Substance: GABAPENTIN
     Route: 048
     Dates: start: 20200820
  5. BACLOFENE [Concomitant]
     Active Substance: BACLOFEN
     Route: 048
     Dates: start: 20200717, end: 202008
  6. TRIMETON [Concomitant]
     Active Substance: CHLORPHENIRAMINE MALEATE
     Indication: PREMEDICATION
     Dosage: SUBSEQUENT DOSE: 13/JAN/2020, 19/AUG/2020 AND 22/MAR/2021
     Route: 030
     Dates: start: 20191227
  7. GABAPENTIN. [Concomitant]
     Active Substance: GABAPENTIN
     Route: 048
     Dates: start: 201912, end: 20200819
  8. BACLOFENE [Concomitant]
     Active Substance: BACLOFEN
     Route: 048
     Dates: start: 202008
  9. PARACETAMOLO [Concomitant]
     Active Substance: ACETAMINOPHEN
     Indication: PREMEDICATION
     Dosage: SUBSEQUENT DOSE: 13/JAN/2020, 19/AUG/2020 AND 22/MAR/2021
     Route: 048
     Dates: start: 20191227, end: 20191227
  10. BACLOFENE [Concomitant]
     Active Substance: BACLOFEN
     Route: 048
     Dates: start: 20200519, end: 20200716
  11. ANTRA [Concomitant]
     Active Substance: OMEPRAZOLE
     Indication: PREMEDICATION
     Dosage: SUBSEQUENT DOSE: 13/JAN/2020, 19/AUG/2020 AND 22/MAR/2021
     Route: 048
     Dates: start: 20191227
  12. METILPREDNISOLONE [Concomitant]
     Active Substance: METHYLPREDNISOLONE
     Indication: PREMEDICATION
     Dosage: SUBSEQUENT DOSE: 13/JAN/2020, 19/AUG/2020 AND 22/MAR/2021
     Route: 042
     Dates: start: 20191227
  13. ZIRTEC [Concomitant]
     Active Substance: CETIRIZINE HYDROCHLORIDE
     Route: 048
  14. OCRELIZUMAB. [Suspect]
     Active Substance: OCRELIZUMAB
     Dosage: 600 MG/500 ML
     Route: 042
     Dates: start: 20210322, end: 20210322

REACTIONS (1)
  - COVID-19 [Recovered/Resolved]

NARRATIVE: CASE EVENT DATE: 20200922
